FAERS Safety Report 17029850 (Version 1)
Quarter: 2019Q4

REPORT INFORMATION
  Report Type: Report from Study
  Country: GB (occurrence: GB)
  Receive Date: 20191114
  Receipt Date: 20191114
  Transmission Date: 20200122
  Serious: Yes (Other)
  Sender: FDA-Public Use
  Company Number: PHHY2015GB027430

PATIENT
  Age: 41 Year
  Sex: Female

DRUGS (1)
  1. GILENYA [Suspect]
     Active Substance: FINGOLIMOD HYDROCHLORIDE
     Indication: MULTIPLE SCLEROSIS
     Dosage: QD
     Route: 048
     Dates: start: 20131108

REACTIONS (12)
  - White blood cell count decreased [Unknown]
  - Fall [Recovered/Resolved]
  - Ataxia [Unknown]
  - Paraesthesia [Unknown]
  - Lymphopenia [Not Recovered/Not Resolved]
  - Musculoskeletal stiffness [Unknown]
  - Micturition urgency [Unknown]
  - Sensory disturbance [Unknown]
  - Muscle spasms [Unknown]
  - Fungal skin infection [Unknown]
  - Functional gastrointestinal disorder [Unknown]
  - Dizziness [Recovered/Resolved]

NARRATIVE: CASE EVENT DATE: 20131121
